FAERS Safety Report 5260242-2 (Version None)
Quarter: 2007Q1

REPORT INFORMATION
  Report Type: 
  Country: None (occurrence: None)
  Receive Date: 20070309
  Receipt Date: 20060512
  Transmission Date: 20070707
  Serious: No
  Sender: FDA-Public Use
  Company Number: CHPA2006US04318

PATIENT
  Age: 65 Year
  Sex: Male
  Weight: 118.2 kg

DRUGS (12)
  1. NICORETTE [Suspect]
  2. NICOTINE [Suspect]
     Dosage: 21MG PER DAY
     Route: 062
     Dates: start: 20060418
  3. DIAZEPAM [Concomitant]
  4. SYNTHROID [Concomitant]
  5. BENICAR [Concomitant]
  6. WELLBUTRIN [Concomitant]
     Route: 065
  7. METFORMIN HCL [Concomitant]
  8. LYRICA [Concomitant]
  9. HYDROCODONE [Concomitant]
  10. FUROSEMIDE [Concomitant]
  11. HERBAL EXTRACTS [Concomitant]
  12. POTASSIUM ACETATE [Concomitant]

REACTIONS (4)
  - APPLICATION SITE ERYTHEMA [None]
  - APPLICATION SITE PRURITUS [None]
  - APPLICATION SITE RASH [None]
  - TREATMENT NONCOMPLIANCE [None]
